FAERS Safety Report 4538462-1 (Version None)
Quarter: 2004Q4

REPORT INFORMATION
  Report Type: 
  Country: None (occurrence: None)
  Receive Date: 20041221
  Receipt Date: 20041208
  Transmission Date: 20050328
  Serious: Yes (Life-Threatening, Other)
  Sender: FDA-Public Use
  Company Number: JP-2004-036229

PATIENT
  Age: 65 Year
  Sex: Female

DRUGS (2)
  1. PROSCOPE (IOPROMIDE) [Suspect]
     Indication: ANGIOGRAM CEREBRAL
     Dosage: INTRA-ARTERIAL
     Route: 013
     Dates: start: 20041130, end: 20041130
  2. FAMOTIDINE [Concomitant]

REACTIONS (6)
  - CEREBRAL ARTERY STENOSIS [None]
  - CEREBRAL INFARCTION [None]
  - CEREBROVASCULAR SPASM [None]
  - CONTRAST MEDIA REACTION [None]
  - DEPRESSED LEVEL OF CONSCIOUSNESS [None]
  - HEMIPLEGIA [None]
